FAERS Safety Report 20089276 (Version 1)
Quarter: 2021Q4

REPORT INFORMATION
  Report Type: Spontaneous
  Country: RO (occurrence: RO)
  Receive Date: 20211119
  Receipt Date: 20211119
  Transmission Date: 20220303
  Serious: Yes (Death, Life-Threatening, Hospitalization, Other)
  Sender: FDA-Public Use
  Company Number: RO-MLMSERVICE-20211104-3208888-1

PATIENT
  Age: 44 Year
  Sex: Male

DRUGS (2)
  1. METHOTREXATE [Suspect]
     Active Substance: METHOTREXATE
     Indication: Rheumatoid arthritis
  2. TOCILIZUMAB [Suspect]
     Active Substance: TOCILIZUMAB
     Indication: Rheumatoid arthritis

REACTIONS (9)
  - Disseminated intravascular coagulation [Fatal]
  - Multiple organ dysfunction syndrome [Fatal]
  - Haemorrhage [Unknown]
  - Metabolic acidosis [Fatal]
  - Beta haemolytic streptococcal infection [Fatal]
  - Necrotising myositis [Fatal]
  - Renal impairment [Fatal]
  - Toxic shock syndrome streptococcal [Fatal]
  - Rhabdomyolysis [Fatal]
